FAERS Safety Report 8920448 (Version 1)
Quarter: 2012Q4

REPORT INFORMATION
  Report Type: 
  Country: US (occurrence: US)
  Receive Date: 20121122
  Receipt Date: 20121122
  Transmission Date: 20130627
  Serious: Yes (Hospitalization)
  Sender: FDA-Public Use
  Company Number: PHHY2012US105072

PATIENT
  Age: 89 Year
  Sex: Female

DRUGS (6)
  1. ACETYLSALICYLIC ACID [Suspect]
  2. BUFFERIN [Suspect]
  3. EXCEDRIN TENSION HEADACHE [Suspect]
     Dosage: 2 DF
  4. EXCEDRIN UNKNOWN [Suspect]
  5. WARFARIN [Concomitant]
  6. WATER PILLS [Concomitant]

REACTIONS (10)
  - Haemorrhage [Recovered/Resolved]
  - Headache [Recovered/Resolved]
  - Pain in extremity [Recovered/Resolved]
  - Arthritis [Not Recovered/Not Resolved]
  - Blood pressure increased [Recovered/Resolved]
  - Malaise [Recovered/Resolved]
  - Nausea [Recovered/Resolved]
  - Arthralgia [Recovered/Resolved]
  - Inflammation [Recovered/Resolved]
  - Road traffic accident [Unknown]
